FAERS Safety Report 9718678 (Version 1)
Quarter: 2013Q4

REPORT INFORMATION
  Report Type: Not Available
  Country: US (occurrence: US)
  Receive Date: 20131125
  Receipt Date: 20131125
  Transmission Date: 20140711
  Serious: No
  Sender: FDA-Public Use
  Company Number: US-H. LUNDBECK A/S-DKLU1091284

PATIENT
  Sex: Male

DRUGS (3)
  1. ONFI [Suspect]
     Indication: PRODUCT USED FOR UNKNOWN INDICATION
  2. ONFI [Suspect]
  3. ONFI [Suspect]

REACTIONS (6)
  - Swelling [Unknown]
  - Blood pressure decreased [Unknown]
  - Tremor [Unknown]
  - Fatigue [Unknown]
  - Sedation [Unknown]
  - Decreased appetite [Unknown]
